FAERS Safety Report 9270424 (Version 2)
Quarter: 2013Q2

REPORT INFORMATION
  Report Type: Spontaneous
  Country: US (occurrence: US)
  Receive Date: 20130503
  Receipt Date: 20130618
  Transmission Date: 20140414
  Serious: Yes (Hospitalization, Other)
  Sender: FDA-Public Use
  Company Number: US-ASTRAZENECA-2013SE29793

PATIENT
  Age: 25438 Day
  Sex: Female
  Weight: 68 kg

DRUGS (3)
  1. SYMBICORT [Suspect]
     Indication: ASTHMA
     Dosage: 160/4.5, 2 PUFFS BID
     Route: 055
     Dates: start: 201212
  2. PROAIR INHALER [Concomitant]
     Indication: ASTHMA
     Dosage: PRN
     Route: 055
  3. VENTILIN INHALER [Concomitant]
     Indication: ASTHMA
     Dosage: PRN
     Route: 055

REACTIONS (5)
  - Asthma [Recovered/Resolved]
  - Dyspnoea [Unknown]
  - Influenza [Recovered/Resolved]
  - Oxygen saturation decreased [Unknown]
  - Drug ineffective [Unknown]
